FAERS Safety Report 4563237-7 (Version None)
Quarter: 2005Q1

REPORT INFORMATION
  Report Type: 
  Country: None (occurrence: None)
  Receive Date: 20050121
  Receipt Date: 20050112
  Transmission Date: 20050727
  Serious: Yes (Hospitalization)
  Sender: FDA-Public Use
  Company Number: 2005012393

PATIENT
  Sex: Male

DRUGS (1)
  1. TAHOR (ATORVASTATIN) [Suspect]
     Indication: ILL-DEFINED DISORDER

REACTIONS (1)
  - CHOLELITHIASIS [None]
